FAERS Safety Report 21522205 (Version 1)
Quarter: 2022Q4

REPORT INFORMATION
  Report Type: Spontaneous
  Country: US (occurrence: None)
  Receive Date: 20221028
  Receipt Date: 20221028
  Transmission Date: 20230113
  Serious: No
  Sender: FDA-Public Use
  Company Number: 2022A349831

PATIENT
  Age: 47 Year
  Sex: Male

DRUGS (1)
  1. TEZSPIRE [Suspect]
     Active Substance: TEZEPELUMAB-EKKO
     Indication: Asthma
     Route: 058
     Dates: start: 20221014

REACTIONS (2)
  - Conjunctival hyperaemia [Recovered/Resolved with Sequelae]
  - Eye inflammation [Recovered/Resolved with Sequelae]

NARRATIVE: CASE EVENT DATE: 20221014
